FAERS Safety Report 10049086 (Version 6)
Quarter: 2014Q3

REPORT INFORMATION
  Report Type: Spontaneous
  Country: SE (occurrence: SE)
  Receive Date: 20140331
  Receipt Date: 20140901
  Transmission Date: 20150326
  Serious: Yes (Other)
  Sender: FDA-Public Use
  Company Number: SE-AMGEN-SWESP2014022507

PATIENT
  Age: 66 Year
  Sex: Female

DRUGS (15)
  1. ENBREL [Suspect]
     Active Substance: ETANERCEPT
     Indication: ANKYLOSING SPONDYLITIS
     Dosage: 25 MG, WEEKLY
     Route: 058
     Dates: start: 20140304
  2. WARAN [Concomitant]
     Active Substance: WARFARIN SODIUM
     Dosage: AS PRESCRIBED
     Dates: start: 2006
  3. VAGIFEM [Concomitant]
     Active Substance: ESTRADIOL
     Dosage: ACCORDING TO THE TREATMENT SCHEDULE
     Dates: start: 2010
  4. DIGOXIN. [Concomitant]
     Active Substance: DIGOXIN
     Dosage: 0.13 MG, DAILY
     Dates: start: 2012
  5. TIMOSAN [Concomitant]
     Active Substance: TIMOLOL MALEATE
     Dosage: 1 MG/ML, DAILY, IN THE LEFT EYE
     Dates: start: 20140521
  6. BEHEPAN                            /00056201/ [Concomitant]
     Dosage: 1 MG, DAILY
     Dates: start: 2013
  7. FOLACIN                            /00198401/ [Concomitant]
     Active Substance: FOLIC ACID
     Dosage: 1 DF, DAILY, 2 DAYS/WEEK
     Dates: start: 2005
  8. DIGOXIN. [Concomitant]
     Active Substance: DIGOXIN
     Dosage: .13 MG, 1X/DAY
     Dates: start: 2012
  9. EMGESAN [Concomitant]
     Dosage: 250 MG, DAILY
     Dates: start: 2012
  10. ARANESP [Concomitant]
     Active Substance: DARBEPOETIN ALFA
     Dosage: 60 UG, DAILY, EVERY FOUR WEEKS
     Dates: start: 2012
  11. METOJECT [Concomitant]
     Active Substance: METHOTREXATE SODIUM
     Dosage: 20 MG, WEEKLY
     Dates: start: 2005
  12. VISCOTEARS [Concomitant]
     Active Substance: CARBOMER
     Dosage: AS NEEDED
     Dates: start: 2013
  13. ISOPTIN [Concomitant]
     Active Substance: VERAPAMIL HYDROCHLORIDE
     Dosage: 120 MG, DAILY
     Dates: start: 2007
  14. TRAVATAN [Concomitant]
     Active Substance: TRAVOPROST
     Dosage: 40 UG/ML, DAILY, IN THE LEFT EYE
     Dates: start: 2012
  15. ISOPTIN RET [Concomitant]
     Dosage: 120 MG, DAILY
     Dates: start: 2007

REACTIONS (13)
  - Blister [Unknown]
  - Otitis media acute [Unknown]
  - Herpes ophthalmic [Unknown]
  - Infection [Unknown]
  - Injection site hypersensitivity [Not Recovered/Not Resolved]
  - Eye disorder [Unknown]
  - Asthenia [Not Recovered/Not Resolved]
  - Injection site erythema [Not Recovered/Not Resolved]
  - Fatigue [Not Recovered/Not Resolved]
  - Ligament sprain [Unknown]
  - Eye irritation [Unknown]
  - Weight decreased [Not Recovered/Not Resolved]
  - Injection site pruritus [Not Recovered/Not Resolved]

NARRATIVE: CASE EVENT DATE: 2014
